FAERS Safety Report 21298514 (Version 2)
Quarter: 2022Q3

REPORT INFORMATION
  Report Type: Report from Study
  Country: IT (occurrence: IT)
  Receive Date: 20220906
  Receipt Date: 20220912
  Transmission Date: 20221026
  Serious: Yes (Other)
  Sender: FDA-Public Use
  Company Number: IT-BRISTOL-MYERS SQUIBB COMPANY-2022-101106

PATIENT
  Age: 59 Year
  Sex: Male
  Weight: 60 kg

DRUGS (10)
  1. ABRAXANE [Suspect]
     Active Substance: PACLITAXEL
     Indication: Transitional cell cancer of the renal pelvis and ureter localised
     Dosage: PACLITAXEL ALBUMIN WAS ADMINISTERED TO THE PATIENT ON DAY 1 AND DAY 14 OF THE 28 DAY CYCLE. ON DAY 1
     Route: 042
     Dates: start: 20220729, end: 20220811
  2. ABRAXANE [Suspect]
     Active Substance: PACLITAXEL
     Indication: Pancreatic carcinoma
  3. CAPECITABINE [Suspect]
     Active Substance: CAPECITABINE
     Indication: Transitional cell cancer of the renal pelvis and ureter localised
     Dosage: THE PATIENT TOOK 2000 MG PER DAY OF CAPECITABINE CONTINUOUSLY DURING ALL THE 28 DAYS OF THE CYCLE
     Route: 048
     Dates: start: 20220729, end: 20220825
  4. CAPECITABINE [Suspect]
     Active Substance: CAPECITABINE
     Indication: Pancreatic carcinoma
  5. CISPLATIN [Suspect]
     Active Substance: CISPLATIN
     Indication: Pancreatic carcinoma
     Dosage: CISPLATIN WAS ADMINISTERED TO THE PATIENT ON DAYS 1 AND 14 OF THE 28-DAY CYCLE. ON DAY 1 (29/07/2022
     Route: 042
     Dates: start: 20220729, end: 20220811
  6. CISPLATIN [Suspect]
     Active Substance: CISPLATIN
     Indication: Transitional cell cancer of the renal pelvis and ureter localised
  7. GEMCITABINE HYDROCHLORIDE [Suspect]
     Active Substance: GEMCITABINE HYDROCHLORIDE
     Indication: Pancreatic carcinoma
     Dosage: GEMCITABINE WAS ADMINISTERED TO THE PATIENT ON DAY 1 AND DAY 14 OF THE 28-DAY CYCLE. ON DAY 1 (29-JU
     Route: 042
     Dates: start: 20220729, end: 20220811
  8. GEMCITABINE HYDROCHLORIDE [Suspect]
     Active Substance: GEMCITABINE HYDROCHLORIDE
     Indication: Transitional cell cancer of the renal pelvis and ureter localised
  9. LANSOPRAZOLE [Concomitant]
     Active Substance: LANSOPRAZOLE
     Indication: Product used for unknown indication
     Dosage: THE PATIENT TAKES 30 MG OF LANSOPRAZOLE ONCE A DAY
     Route: 048
  10. ACIDO URSODESOSSICOLICO [Concomitant]
     Indication: Product used for unknown indication
     Dosage: IL PAZIENTE ASSUME 450 MG DI ACIDO URSODESOSSICOLICO 1 VOLTA AL GIORNO
     Route: 048

REACTIONS (3)
  - Hypokalaemia [Unknown]
  - Diarrhoea [Recovered/Resolved]
  - Abdominal distension [Recovered/Resolved]

NARRATIVE: CASE EVENT DATE: 20220730
